FAERS Safety Report 23270128 (Version 2)
Quarter: 2025Q2

REPORT INFORMATION
  Report Type: Report from Study
  Country: ZA (occurrence: ZA)
  Receive Date: 20231207
  Receipt Date: 20250630
  Transmission Date: 20250717
  Serious: Yes (Other)
  Sender: ROCHE
  Company Number: ZA-ROCHE-3465972

PATIENT
  Sex: Male

DRUGS (1)
  1. OCREVUS [Suspect]
     Active Substance: OCRELIZUMAB
     Indication: Primary progressive multiple sclerosis
     Dosage: THEREAFTER 600 MG EVERY 6 MONTHS
     Route: 042

REACTIONS (3)
  - Magnetic resonance imaging head abnormal [Unknown]
  - Cerebral atrophy [Unknown]
  - White matter lesion [Unknown]
